FAERS Safety Report 5646695-6 (Version None)
Quarter: 2008Q1

REPORT INFORMATION
  Report Type: 
  Country: None (occurrence: None)
  Receive Date: 20080303
  Receipt Date: 20080220
  Transmission Date: 20080703
  Serious: Yes (Hospitalization)
  Sender: FDA-Public Use
  Company Number: US-AMGEN-QUU266195

PATIENT
  Sex: Female

DRUGS (1)
  1. NEULASTA [Suspect]
     Indication: CHEMOTHERAPY
     Route: 065
     Dates: start: 20080201

REACTIONS (9)
  - BONE MARROW FAILURE [None]
  - BONE PAIN [None]
  - DYSPHAGIA [None]
  - GASTROINTESTINAL DISORDER [None]
  - MUSCULOSKELETAL DISCOMFORT [None]
  - MYALGIA [None]
  - NEUTROPENIA [None]
  - ODYNOPHAGIA [None]
  - PYREXIA [None]
